FAERS Safety Report 9397538 (Version 2)
Quarter: 2013Q3

REPORT INFORMATION
  Report Type: Spontaneous
  Country: IT (occurrence: IT)
  Receive Date: 20130712
  Receipt Date: 20130814
  Transmission Date: 20140515
  Serious: Yes (Other)
  Sender: FDA-Public Use
  Company Number: IT-PFIZER INC-2013202320

PATIENT
  Sex: 0

DRUGS (3)
  1. PREPIDIL [Suspect]
     Indication: LABOUR STIMULATION
     Dosage: UNK
     Route: 064
     Dates: start: 20130702, end: 20130702
  2. ALDOMET [Concomitant]
     Dosage: 250 MG, UNK
     Route: 064
     Dates: start: 20130626, end: 20130703
  3. SELEPARINA [Concomitant]
     Dosage: UNK
     Route: 064
     Dates: start: 20120922, end: 20130703

REACTIONS (1)
  - Foetal monitoring abnormal [Unknown]
